FAERS Safety Report 7456539-8 (Version None)
Quarter: 2011Q2

REPORT INFORMATION
  Report Type: 
  Country: None (occurrence: None)
  Receive Date: 20110503
  Receipt Date: 20110428
  Transmission Date: 20111010
  Serious: Yes (Death, Life-Threatening, Hospitalization, Other)
  Sender: FDA-Public Use
  Company Number: JP-CEPHALON-2011001213

PATIENT
  Age: 59 Year
  Sex: Male

DRUGS (5)
  1. BENDAMUSTINE HCL [Suspect]
     Route: 042
     Dates: start: 20110413, end: 20110414
  2. BENDAMUSTINE HCL [Suspect]
     Route: 042
     Dates: start: 20110209, end: 20110210
  3. BENDAMUSTINE HCL [Suspect]
     Indication: MANTLE CELL LYMPHOMA
     Route: 042
     Dates: start: 20110118, end: 20110119
  4. BENDAMUSTINE HCL [Suspect]
     Route: 042
     Dates: start: 20110302, end: 20110303
  5. RITUXIMAB [Concomitant]
     Indication: MANTLE CELL LYMPHOMA
     Dates: start: 20110209

REACTIONS (5)
  - MONOPLEGIA [None]
  - BONE MARROW FAILURE [None]
  - NEUTROPENIA [None]
  - SEPSIS [None]
  - MANTLE CELL LYMPHOMA [None]
